FAERS Safety Report 23621865 (Version 1)
Quarter: 2024Q1

REPORT INFORMATION
  Report Type: Spontaneous
  Country: CN (occurrence: None)
  Receive Date: 20240312
  Receipt Date: 20240312
  Transmission Date: 20240409
  Serious: Yes (Other)
  Sender: FDA-Public Use
  Company Number: 2024A032736

PATIENT
  Age: 67 Year
  Sex: Male
  Weight: 60 kg

DRUGS (2)
  1. IMFINZI [Suspect]
     Active Substance: DURVALUMAB
     Indication: Lung neoplasm malignant
     Dosage: 500 MG X 1 + 120 MG X 1 PER CYCLE
     Route: 042
     Dates: start: 2023
  2. IMFINZI [Suspect]
     Active Substance: DURVALUMAB
     Indication: Lung neoplasm malignant
     Dosage: 500 MG X 1 + 120 MG X 1 PER CYCLE
     Route: 042

REACTIONS (2)
  - COVID-19 pneumonia [Recovered/Resolved]
  - Pneumonitis [Recovered/Resolved]
